FAERS Safety Report 22823165 (Version 4)
Quarter: 2023Q4

REPORT INFORMATION
  Report Type: Spontaneous
  Country: DE (occurrence: DE)
  Receive Date: 20230815
  Receipt Date: 20231013
  Transmission Date: 20240110
  Serious: Yes (Other)
  Sender: FDA-Public Use
  Company Number: None

PATIENT
  Sex: Female

DRUGS (9)
  1. PANTOPRAZOLE SODIUM [Suspect]
     Active Substance: PANTOPRAZOLE SODIUM
     Dosage: 1 X MORGENS?SEIT JAHREN
  2. HYDROCORTISONE [Suspect]
     Active Substance: HYDROCORTISONE
     Indication: Product used for unknown indication
     Dosage: 1 MORGENS?SEIT JAHREN??10 MG, QD (1 AM FOR YEARS)
     Route: 065
  3. OXYCODONE [Suspect]
     Active Substance: OXYCODONE
     Indication: Product used for unknown indication
     Dosage: SEIT JAHREN?MORGENS 1?1X IN THE MORNING, FOR YEARS
     Route: 065
  4. OXYCODONE [Suspect]
     Active Substance: OXYCODONE
     Dosage: 20 MG, QD (IF NECESSARY IN THE EVENING FOR YEARS)
     Route: 065
  5. OXYCODONE [Suspect]
     Active Substance: OXYCODONE
     Indication: Product used for unknown indication
     Dosage: BEI BEDARF ABENDS?SEIT JAHREN?20MICROGRAM AS NECESSARY
     Route: 065
  6. LEVOTHYROXINE SODIUM [Suspect]
     Active Substance: LEVOTHYROXINE SODIUM
     Indication: Product used for unknown indication
     Dosage: 1 MORGENS?SEIT JAHREN
     Route: 065
  7. ACETAMINOPHEN\CODEINE PHOSPHATE [Suspect]
     Active Substance: ACETAMINOPHEN\CODEINE PHOSPHATE
     Dosage: 3-4X T?GLICH 1?SEIT JAHREN
  8. AMLODIPINE MALEATE [Suspect]
     Active Substance: AMLODIPINE MALEATE
     Indication: Product used for unknown indication
     Dosage: 5 MG 1 MORGENS?5 MG 1 ABENDS?UNREGELM?SSIG BEI BEDARF ?(5 MG 1X IN THE MORNING, 5 MG 1X IN THE EVENI
     Route: 065
  9. BISOPROLOL FUMARATE [Suspect]
     Active Substance: BISOPROLOL FUMARATE
     Indication: Product used for unknown indication
     Dosage: 1 MORGENS
     Route: 065

REACTIONS (7)
  - Blood pressure increased [Unknown]
  - Feeling abnormal [Unknown]
  - Tinnitus [Unknown]
  - Heart rate increased [Unknown]
  - Oedema peripheral [Unknown]
  - Fear of death [Unknown]
  - Oedema peripheral [Unknown]
